FAERS Safety Report 6475205-9 (Version None)
Quarter: 2009Q4

REPORT INFORMATION
  Report Type: 
  Country: None (occurrence: None)
  Receive Date: 20091119
  Receipt Date: 20090730
  Transmission Date: 20100525
  Serious: No
  Sender: FDA-Public Use
  Company Number: WAES 0907USA05686

PATIENT
  Age: 65 Year
  Sex: Female

DRUGS (12)
  1. JANUVIA [Suspect]
     Indication: DIABETES MELLITUS
     Dosage: 50 MG/BID/PO
     Route: 048
     Dates: start: 20080901
  2. ALTACE [Concomitant]
  3. COUMADIN [Concomitant]
  4. COZAAR [Concomitant]
  5. GLUCOTROL XL [Concomitant]
  6. LASIX [Concomitant]
  7. NEXIUM [Concomitant]
  8. PRAVACHOL [Concomitant]
  9. PRED FORTE [Concomitant]
  10. RANEXA [Concomitant]
  11. TOPROL-XL [Concomitant]
  12. ASPIRIN [Concomitant]

REACTIONS (1)
  - ALOPECIA [None]
